FAERS Safety Report 4721856-9 (Version None)
Quarter: 2005Q3

REPORT INFORMATION
  Report Type: 
  Country: None (occurrence: None)
  Receive Date: 20050721
  Receipt Date: 20050512
  Transmission Date: 20060218
  Serious: No
  Sender: FDA-Public Use
  Company Number: US-BRISTOL-MYERS SQUIBB COMPANY-12966263

PATIENT
  Age: 73 Year
  Sex: Female
  Weight: 41 kg

DRUGS (2)
  1. COUMADIN [Suspect]
     Indication: HEART VALVE OPERATION
     Dosage: 2.5 MG DAILY SINCE JUL-2004, CURRENTLY 7.5 MG 5 TIMES PER WEEK AND 10 MG 2 TIMES PER WEEK.
     Dates: start: 20040701
  2. INDERAL [Concomitant]

REACTIONS (3)
  - BLOOD CHOLESTEROL INCREASED [None]
  - BLOOD TRIGLYCERIDES INCREASED [None]
  - PROTHROMBIN TIME ABNORMAL [None]
